FAERS Safety Report 4468337-8 (Version None)
Quarter: 2004Q4

REPORT INFORMATION
  Report Type: 
  Country: None (occurrence: None)
  Receive Date: 20041007
  Receipt Date: 20040420
  Transmission Date: 20050328
  Serious: Yes (Hospitalization)
  Sender: FDA-Public Use
  Company Number: US-BRISTOL-MYERS SQUIBB COMPANY-12567392

PATIENT
  Age: 71 Year
  Sex: Female

DRUGS (12)
  1. MURAGLITAZAR [Suspect]
     Indication: DIABETES MELLITUS NON-INSULIN-DEPENDENT
     Route: 048
     Dates: start: 20040128, end: 20040417
  2. METFORMIN HCL [Suspect]
     Route: 048
     Dates: start: 19930101
  3. NEXIUM [Concomitant]
     Indication: GASTROOESOPHAGEAL REFLUX DISEASE
     Route: 048
     Dates: start: 20010101
  4. NEURONTIN [Concomitant]
     Indication: NEUROPATHY
     Route: 048
     Dates: start: 20031001
  5. LIPITOR [Concomitant]
     Indication: BLOOD CHOLESTEROL
     Route: 048
     Dates: start: 20031119
  6. ACCURETIC [Concomitant]
     Indication: HYPERTENSION
     Dosage: DOSE VALUE:  40/25 MILLIGRAMS
     Route: 048
     Dates: start: 20030101
  7. CELEBREX [Concomitant]
     Indication: PAIN
     Route: 048
     Dates: start: 20020101
  8. ASPIRIN [Concomitant]
     Indication: PROPHYLAXIS
     Route: 048
     Dates: start: 20020101
  9. NORVASC [Concomitant]
     Indication: HYPERTENSION
     Route: 048
     Dates: start: 20031119
  10. LORTAB [Concomitant]
     Indication: PAIN
     Dates: start: 20020101
  11. XENICAL [Concomitant]
     Dates: start: 20040316
  12. MULTI-VITAMIN [Concomitant]
     Dates: start: 20020101

REACTIONS (1)
  - ANAEMIA [None]
